FAERS Safety Report 8933312 (Version 1)
Quarter: 2012Q4

REPORT INFORMATION
  Report Type: 
  Country: US (occurrence: US)
  Receive Date: 20121128
  Receipt Date: 20121128
  Transmission Date: 20130627
  Serious: No
  Sender: FDA-Public Use
  Company Number: US-ASTRAZENECA-2012SE84591

PATIENT
  Age: 75 Year
  Sex: Female
  Weight: 65.8 kg

DRUGS (4)
  1. CRESTOR [Suspect]
     Indication: BLOOD CHOLESTEROL INCREASED
     Route: 048
     Dates: start: 20120823, end: 20121022
  2. LIPITOR [Suspect]
     Route: 065
  3. SIMVASTATIN [Suspect]
     Route: 065
  4. VITAMINS [Concomitant]

REACTIONS (8)
  - Feeling hot [Unknown]
  - Hypoaesthesia [Recovering/Resolving]
  - Pain [Unknown]
  - Insomnia [Unknown]
  - Pain in extremity [Recovering/Resolving]
  - Pain in extremity [Unknown]
  - Pain in extremity [Unknown]
  - Musculoskeletal pain [Unknown]
